FAERS Safety Report 24533863 (Version 2)
Quarter: 2025Q3

REPORT INFORMATION
  Report Type: Report from Study
  Country: US (occurrence: US)
  Receive Date: 20241022
  Receipt Date: 20250809
  Transmission Date: 20251021
  Serious: Yes (Other)
  Sender: ALEXION PHARMACEUTICALS
  Company Number: US-AstraZeneca-CH-00700325A

PATIENT
  Age: 38 Year
  Sex: Female

DRUGS (7)
  1. ULTOMIRIS [Suspect]
     Active Substance: RAVULIZUMAB-CWVZ
     Indication: Myasthenia gravis
     Route: 065
  2. PREDNISONE [Concomitant]
     Active Substance: PREDNISONE
     Route: 065
  3. METFORMIN [Concomitant]
     Active Substance: METFORMIN HYDROCHLORIDE
     Dosage: UNK UNK, BID
     Route: 065
  4. CYCLOBENZAPRINE [Concomitant]
     Active Substance: CYCLOBENZAPRINE
     Route: 065
  5. AZATHIOPRINE [Concomitant]
     Active Substance: AZATHIOPRINE
     Dosage: 50 MILLIGRAM, 2 TABLETS
     Route: 065
  6. METHOCARBAMOL [Concomitant]
     Active Substance: METHOCARBAMOL
     Dosage: UNK, QD, 1 -2 TABLETS PRN
  7. NAPROXEN SODIUM [Concomitant]
     Active Substance: NAPROXEN SODIUM
     Indication: Inflammation
     Route: 065

REACTIONS (21)
  - Blindness [Recovered/Resolved with Sequelae]
  - Loss of consciousness [Recovering/Resolving]
  - Musculoskeletal stiffness [Unknown]
  - Diplopia [Recovering/Resolving]
  - Withdrawal syndrome [Recovering/Resolving]
  - Discomfort [Unknown]
  - Blood pressure fluctuation [Unknown]
  - Anal incontinence [Unknown]
  - Tremor [Unknown]
  - Pain [Unknown]
  - Hot flush [Unknown]
  - Abdominal pain upper [Unknown]
  - Screaming [Recovering/Resolving]
  - Oxygen saturation decreased [Recovering/Resolving]
  - Retching [Recovering/Resolving]
  - Arthralgia [Recovering/Resolving]
  - Chills [Unknown]
  - Influenza like illness [Unknown]
  - Vomiting [Unknown]
  - Nausea [Unknown]
  - Fatigue [Recovering/Resolving]

NARRATIVE: CASE EVENT DATE: 20240501
